FAERS Safety Report 23235722 (Version 1)
Quarter: 2023Q4

REPORT INFORMATION
  Report Type: Spontaneous
  Country: US (occurrence: US)
  Receive Date: 20231128
  Receipt Date: 20231128
  Transmission Date: 20240110
  Serious: No
  Sender: FDA-Public Use
  Company Number: US-SANDOZ-SDZ2023US060352

PATIENT
  Age: 78 Year
  Sex: Female
  Weight: 68.934 kg

DRUGS (1)
  1. BRIMONIDINE TARTRATE [Suspect]
     Active Substance: BRIMONIDINE TARTRATE
     Indication: Product used for unknown indication
     Dosage: 5 MG, BID (4 DOSE EVERY N/A N/A)
     Route: 047
     Dates: start: 20230423, end: 20230423

REACTIONS (2)
  - Dyschromatopsia [Not Recovered/Not Resolved]
  - Lacrimation increased [Not Recovered/Not Resolved]

NARRATIVE: CASE EVENT DATE: 20230423
